FAERS Safety Report 22524419 (Version 1)
Quarter: 2023Q2

REPORT INFORMATION
  Report Type: Other
  Country: PK (occurrence: None)
  Receive Date: 20230606
  Receipt Date: 20230606
  Transmission Date: 20230721
  Serious: Yes (Other)
  Sender: FDA-Public Use
  Company Number: PK-ROCHE-3361315

PATIENT
  Age: 61 Year
  Sex: Male

DRUGS (1)
  1. RITUXIMAB [Suspect]
     Active Substance: RITUXIMAB
     Indication: Diffuse large B-cell lymphoma
     Dosage: THERAPY FOR 6 CYCLES 3 WEEKLY
     Route: 041
     Dates: start: 20220106

REACTIONS (2)
  - Lymphoma transformation [Unknown]
  - Disease progression [Unknown]

NARRATIVE: CASE EVENT DATE: 20230523
